FAERS Safety Report 24691175 (Version 1)
Quarter: 2024Q4

REPORT INFORMATION
  Report Type: Spontaneous
  Country: JP (occurrence: JP)
  Receive Date: 20241203
  Receipt Date: 20241203
  Transmission Date: 20250114
  Serious: Yes (Other)
  Sender: PFIZER
  Company Number: JP-PFIZER INC-PV202400153794

PATIENT
  Age: 3 Decade
  Sex: Male
  Weight: 63.4 kg

DRUGS (2)
  1. METHYLPREDNISOLONE SODIUM SUCCINATE [Suspect]
     Active Substance: METHYLPREDNISOLONE SODIUM SUCCINATE
     Indication: Acute hepatitis B
     Dosage: 1000 MG
     Route: 042
  2. SODIUM SUCCINATE [Suspect]
     Active Substance: SODIUM SUCCINATE HEXAHYDRATE

REACTIONS (3)
  - Reaction to excipient [Recovered/Resolved]
  - Anaphylactic reaction [Recovering/Resolving]
  - Off label use [Unknown]
